FAERS Safety Report 20811159 (Version 17)
Quarter: 2025Q1

REPORT INFORMATION
  Report Type: Spontaneous
  Country: US (occurrence: US)
  Receive Date: 20220510
  Receipt Date: 20250204
  Transmission Date: 20250408
  Serious: Yes (Other)
  Sender: PFIZER
  Company Number: US-PFIZER INC-202200214921

PATIENT
  Age: 80 Year
  Sex: Female
  Weight: 74.8 kg

DRUGS (12)
  1. XELJANZ XR [Suspect]
     Active Substance: TOFACITINIB CITRATE
     Indication: Rheumatoid arthritis
     Dosage: 11 MG, 1X/DAY
     Route: 048
  2. XELJANZ XR [Suspect]
     Active Substance: TOFACITINIB CITRATE
  3. ALPRAZOLAM [Concomitant]
     Active Substance: ALPRAZOLAM
  4. CITRATE [Concomitant]
     Active Substance: CITRIC ACID MONOHYDRATE
  5. DICYCLOMINE [Concomitant]
     Active Substance: DICYCLOMINE HYDROCHLORIDE
  6. NORCO [Concomitant]
     Active Substance: ACETAMINOPHEN\HYDROCODONE BITARTRATE
  7. OLMESARTAN [Concomitant]
     Active Substance: OLMESARTAN
  8. PANTOPRAZOLE [Concomitant]
     Active Substance: PANTOPRAZOLE
  9. RECLAST [Concomitant]
     Active Substance: ZOLEDRONIC ACID
  10. PEPCID [Concomitant]
     Active Substance: FAMOTIDINE
  11. TRAMADOL [Concomitant]
     Active Substance: TRAMADOL
  12. TYLENOL [Concomitant]
     Active Substance: ACETAMINOPHEN

REACTIONS (12)
  - Feeling abnormal [Unknown]
  - Drug ineffective [Unknown]
  - Gastrointestinal disorder [Unknown]
  - Sciatica [Unknown]
  - Back disorder [Unknown]
  - Illness [Unknown]
  - Pain [Not Recovered/Not Resolved]
  - Sensitivity to weather change [Unknown]
  - Blood pressure abnormal [Unknown]
  - Confusional state [Unknown]
  - Feeling abnormal [Unknown]
  - Urinary tract infection [Unknown]
